FAERS Safety Report 23500609 (Version 1)
Quarter: 2024Q1

REPORT INFORMATION
  Report Type: Spontaneous
  Country: US (occurrence: US)
  Receive Date: 20240208
  Receipt Date: 20240208
  Transmission Date: 20240409
  Serious: Yes (Other)
  Sender: FDA-Public Use
  Company Number: US-GE HEALTHCARE-2024CSU001056

PATIENT
  Age: 28 Year
  Sex: Female

DRUGS (1)
  1. GADOLINIUM [Suspect]
     Active Substance: GADOLINIUM
     Indication: Magnetic resonance imaging head
     Dosage: UNK, TOTAL
     Route: 065

REACTIONS (2)
  - Pulmonary function test decreased [Recovering/Resolving]
  - Nephrogenic systemic fibrosis [Recovering/Resolving]
